FAERS Safety Report 6183067-2 (Version None)
Quarter: 2009Q2

REPORT INFORMATION
  Report Type: 
  Country: None (occurrence: None)
  Receive Date: 20090507
  Receipt Date: 20090504
  Transmission Date: 20091009
  Serious: Yes (Other)
  Sender: FDA-Public Use
  Company Number: CA-ASTRAZENECA-2009UW11397

PATIENT
  Sex: Male

DRUGS (5)
  1. CRESTOR [Suspect]
     Route: 048
  2. METFORMIN HCL [Concomitant]
     Route: 048
  3. INSULIN [Concomitant]
  4. HYZAAR [Concomitant]
     Route: 048
  5. VITAMIN [Concomitant]
     Route: 048

REACTIONS (7)
  - ABDOMINAL PAIN [None]
  - ASTHENIA [None]
  - BACK PAIN [None]
  - CHROMATURIA [None]
  - MUSCULAR WEAKNESS [None]
  - MYALGIA [None]
  - PAIN OF SKIN [None]
